FAERS Safety Report 20391694 (Version 1)
Quarter: 2022Q1

REPORT INFORMATION
  Report Type: Spontaneous
  Country: AU (occurrence: AU)
  Receive Date: 20220128
  Receipt Date: 20220128
  Transmission Date: 20220423
  Serious: Yes (Disabling, Other)
  Sender: FDA-Public Use
  Company Number: AU-ABBVIE-22K-008-4254417-00

PATIENT
  Age: 73 Year
  Sex: Female

DRUGS (3)
  1. ADALIMUMAB [Suspect]
     Active Substance: ADALIMUMAB
     Indication: Product used for unknown indication
     Route: 058
  2. OZURDEX [Suspect]
     Active Substance: DEXAMETHASONE
     Indication: Uveitis
     Route: 065
     Dates: start: 20191119
  3. OZURDEX [Suspect]
     Active Substance: DEXAMETHASONE
     Indication: Serpiginous choroiditis

REACTIONS (3)
  - Device dislocation [Recovered/Resolved with Sequelae]
  - Eye disorder [Unknown]
  - Corneal disorder [Unknown]

NARRATIVE: CASE EVENT DATE: 20191223
